FAERS Safety Report 17867752 (Version 1)
Quarter: 2020Q2

REPORT INFORMATION
  Report Type: Spontaneous
  Country: None (occurrence: US)
  Receive Date: 20200605
  Receipt Date: 20200605
  Transmission Date: 20200714
  Serious: No
  Sender: FDA-Public Use
  Company Number: US-ARMSTRONG PHARMACEUTICALS, INC.-2085515

PATIENT
  Age: 17 Year
  Sex: Female
  Weight: 54.55 kg

DRUGS (1)
  1. PRIMATENE MIST [Suspect]
     Active Substance: EPINEPHRINE
     Indication: ASTHMA EXERCISE INDUCED
     Route: 055
     Dates: start: 20200410

REACTIONS (2)
  - Dyspnoea [Unknown]
  - Burning sensation [Recovered/Resolved]

NARRATIVE: CASE EVENT DATE: 20200410
